FAERS Safety Report 18716394 (Version 1)
Quarter: 2021Q1

REPORT INFORMATION
  Report Type: Other
  Country: DE (occurrence: DE)
  Receive Date: 20210108
  Receipt Date: 20210108
  Transmission Date: 20210419
  Serious: Yes (Other)
  Sender: FDA-Public Use
  Company Number: DE-MACLEODS PHARMACEUTICALS US LTD-MAC2020029705

PATIENT

DRUGS (3)
  1. PROPESS VAGINAL INSERT [Concomitant]
     Indication: LABOUR INDUCTION
     Dosage: UNK, 37. ? 37. GESTATIONAL WEEK
     Route: 064
     Dates: start: 20200507, end: 20200507
  2. ESCITALOPRAM [Suspect]
     Active Substance: ESCITALOPRAM OXALATE
     Indication: PRODUCT USED FOR UNKNOWN INDICATION
     Dosage: 2.5 MILLIGRAM, QD, 0. ? 37.1. GESTATIONAL WEEK
     Route: 064
     Dates: start: 20190822, end: 20200508
  3. INFLUENZA VACCINE [Concomitant]
     Active Substance: INFLUENZA VIRUS VACCINE
     Indication: IMMUNISATION
     Dosage: UNK, 29. ? 29. GESTATIONAL WEEK
     Route: 064
     Dates: start: 20200312, end: 20200312

REACTIONS (3)
  - Foetal exposure during pregnancy [Unknown]
  - Infantile haemangioma [Unknown]
  - Small for dates baby [Recovering/Resolving]

NARRATIVE: CASE EVENT DATE: 20200508
